FAERS Safety Report 5007676-9 (Version None)
Quarter: 2006Q2

REPORT INFORMATION
  Report Type: 
  Country: None (occurrence: None)
  Receive Date: 20060522
  Receipt Date: 20060406
  Transmission Date: 20061013
  Serious: Yes (Other)
  Sender: FDA-Public Use
  Company Number: US-ROCHE-443758

PATIENT
  Age: 61 Year
  Sex: Female

DRUGS (11)
  1. PEGASYS [Suspect]
     Route: 050
     Dates: start: 20051215
  2. COPEGUS [Suspect]
     Route: 048
     Dates: start: 20060223
  3. RIBAVIRIN [Suspect]
     Route: 048
     Dates: start: 20060115, end: 20060322
  4. RIBASPHERE [Suspect]
     Route: 048
     Dates: start: 20051215
  5. DOXEPIN [Concomitant]
     Dosage: TAKEN AT NIGHT
     Route: 048
     Dates: start: 20060115
  6. AMOXICILLIN [Concomitant]
     Route: 048
     Dates: start: 20060115
  7. PRILOSEC [Concomitant]
     Route: 048
  8. PHENYLEPHRINE [Concomitant]
     Indication: COUGH
     Route: 048
     Dates: start: 20060115
  9. PROPOXYPHENE HYDROCHLORIDE [Concomitant]
     Indication: PAIN
     Dosage: STRENGTH = 100-650 MG
     Route: 048
  10. HYDROCODONE [Concomitant]
     Indication: PAIN
     Dosage: STRENGTH = 7.5/650 MG TABLET
     Route: 048
  11. PROMETHAZINE [Concomitant]
     Indication: NAUSEA
     Dosage: TAKEN ALSO FOR VOMITING
     Route: 048

REACTIONS (15)
  - ALOPECIA [None]
  - ANAEMIA [None]
  - ANOREXIA [None]
  - CARPAL TUNNEL SYNDROME [None]
  - CONDITION AGGRAVATED [None]
  - COUGH [None]
  - DRY MOUTH [None]
  - FATIGUE [None]
  - IMPAIRED HEALING [None]
  - PLATELET COUNT DECREASED [None]
  - PRURITUS [None]
  - RASH GENERALISED [None]
  - SKIN NODULE [None]
  - THERAPEUTIC RESPONSE UNEXPECTED WITH DRUG SUBSTITUTION [None]
  - WEIGHT DECREASED [None]
